FAERS Safety Report 7168004-6 (Version None)
Quarter: 2010Q4

REPORT INFORMATION
  Report Type: 
  Country: None (occurrence: None)
  Receive Date: 20101216
  Receipt Date: 20101207
  Transmission Date: 20110411
  Serious: Yes (Other)
  Sender: FDA-Public Use
  Company Number: US-PFIZER INC-2010167950

PATIENT

DRUGS (1)
  1. EFFEXOR XR [Suspect]

REACTIONS (7)
  - ABNORMAL BEHAVIOUR [None]
  - ANXIETY [None]
  - CRYING [None]
  - HALLUCINATION, AUDITORY [None]
  - NIGHTMARE [None]
  - SUICIDE ATTEMPT [None]
  - WEIGHT INCREASED [None]
